FAERS Safety Report 4586536-1 (Version None)
Quarter: 2005Q1

REPORT INFORMATION
  Report Type: 
  Country: None (occurrence: None)
  Receive Date: 20050218
  Receipt Date: 20040204
  Transmission Date: 20050727
  Serious: No
  Sender: FDA-Public Use
  Company Number: US-BRISTOL-MYERS SQUIBB COMPANY-12495990

PATIENT
  Age: 65 Year
  Sex: Male
  Weight: 104 kg

DRUGS (6)
  1. TAXOL [Suspect]
     Indication: LUNG NEOPLASM MALIGNANT
     Route: 042
     Dates: start: 20040203, end: 20040203
  2. DECADRON [Concomitant]
  3. ONDANSETRON [Concomitant]
  4. BENADRYL [Concomitant]
  5. PEPCID [Concomitant]
  6. TYLENOL W/ CODEINE [Concomitant]
     Indication: MUSCULOSKELETAL PAIN

REACTIONS (1)
  - EXTRAVASATION [None]
